FAERS Safety Report 4646785-0 (Version None)
Quarter: 2005Q2

REPORT INFORMATION
  Report Type: 
  Country: None (occurrence: None)
  Receive Date: 20050425
  Receipt Date: 20050411
  Transmission Date: 20051028
  Serious: Yes (Hospitalization)
  Sender: FDA-Public Use
  Company Number: 2005BI006320

PATIENT
  Sex: Female
  Weight: 105.6881 kg

DRUGS (5)
  1. AVONEX [Suspect]
     Indication: MULTIPLE SCLEROSIS
     Dosage: 30 UG; QW; IM
     Route: 030
     Dates: start: 20040617
  2. LISINOPRIL [Concomitant]
  3. PRILOSEC [Concomitant]
  4. PROZAC [Concomitant]
  5. VITAMINS [Concomitant]

REACTIONS (4)
  - BLOOD CHOLESTEROL INCREASED [None]
  - PAIN [None]
  - TREMOR [None]
  - WEIGHT INCREASED [None]
